FAERS Safety Report 5936310-6 (Version None)
Quarter: 2008Q4

REPORT INFORMATION
  Report Type: 
  Country: None (occurrence: None)
  Receive Date: 20081029
  Receipt Date: 20081029
  Transmission Date: 20090506
  Serious: Yes (Other)
  Sender: FDA-Public Use
  Company Number: None

PATIENT
  Age: 42 Year
  Sex: Female
  Weight: 56.6996 kg

DRUGS (1)
  1. LYRICA [Suspect]
     Indication: FIBROMYALGIA
     Dosage: 150 MG 3 X DAY PO
     Route: 048
     Dates: start: 20071115, end: 20080816

REACTIONS (8)
  - ABNORMAL BEHAVIOUR [None]
  - AMNESIA [None]
  - COGNITIVE DISORDER [None]
  - COMMUNICATION DISORDER [None]
  - CONFUSIONAL STATE [None]
  - DISORIENTATION [None]
  - IMPAIRED WORK ABILITY [None]
  - THINKING ABNORMAL [None]
